FAERS Safety Report 11051351 (Version 9)
Quarter: 2015Q4

REPORT INFORMATION
  Report Type: Spontaneous
  Country: US (occurrence: US)
  Receive Date: 20150421
  Receipt Date: 20151027
  Transmission Date: 20160304
  Serious: No
  Sender: FDA-Public Use
  Company Number: US-PFIZER INC-2015128458

PATIENT
  Age: 72 Year
  Sex: Female

DRUGS (3)
  1. SUTENT [Suspect]
     Active Substance: SUNITINIB MALATE
     Dosage: 50 MG, EVERY OTHER DAY
     Route: 048
  2. SUTENT [Suspect]
     Active Substance: SUNITINIB MALATE
     Indication: METASTATIC RENAL CELL CARCINOMA
     Dosage: 50 MG, CYCLIC (2 WEEKS ON, 1 WEEK OFF)
     Route: 048
     Dates: start: 201503
  3. SUTENT [Suspect]
     Active Substance: SUNITINIB MALATE
     Dosage: 37.5 MG, CYCLIC (2 WEEKS ON 1 WEEK OFF)
     Route: 048
     Dates: start: 20150406

REACTIONS (25)
  - Headache [Unknown]
  - Fatigue [Unknown]
  - Chromaturia [Unknown]
  - Decreased appetite [Unknown]
  - Dry skin [Unknown]
  - Constipation [Unknown]
  - Peripheral swelling [Unknown]
  - Palmar-plantar erythrodysaesthesia syndrome [Unknown]
  - Vomiting [Unknown]
  - Jaw disorder [Unknown]
  - Dysgeusia [Unknown]
  - Throat tightness [Unknown]
  - Sleep disorder [Unknown]
  - Dizziness [Unknown]
  - Pain in extremity [Unknown]
  - Blood pressure systolic increased [Unknown]
  - Asthenia [Unknown]
  - Lethargy [Unknown]
  - Hyponatraemia [Recovering/Resolving]
  - Abdominal discomfort [Unknown]
  - Diarrhoea [Unknown]
  - Skin burning sensation [Unknown]
  - Joint swelling [Unknown]
  - Weight decreased [Unknown]
  - Hypotension [Unknown]

NARRATIVE: CASE EVENT DATE: 201504
